FAERS Safety Report 17292562 (Version 1)
Quarter: 2020Q1

REPORT INFORMATION
  Report Type: Spontaneous
  Country: RU (occurrence: RU)
  Receive Date: 20200121
  Receipt Date: 20200121
  Transmission Date: 20200409
  Serious: Yes (Life-Threatening, Other)
  Sender: FDA-Public Use
  Company Number: RU-BAYER-2019-238343

PATIENT
  Age: 70 Year

DRUGS (1)
  1. ULTRAVIST [Suspect]
     Active Substance: IOPROMIDE
     Dosage: UNK UNK, ONCE
     Dates: start: 20191210

REACTIONS (3)
  - Seizure [None]
  - Arrhythmia [None]
  - Myocardial infarction [None]

NARRATIVE: CASE EVENT DATE: 20191210
